FAERS Safety Report 14433294 (Version 1)
Quarter: 2018Q1

REPORT INFORMATION
  Report Type: Spontaneous
  Country: US (occurrence: US)
  Receive Date: 20180124
  Receipt Date: 20180124
  Transmission Date: 20180509
  Serious: Yes (Other)
  Sender: FDA-Public Use
  Company Number: US-PIRAMAL CRITICAL CARE LIMITED-2017-PEL-003163

PATIENT

DRUGS (1)
  1. GABLOFEN [Suspect]
     Active Substance: BACLOFEN
     Indication: PRODUCT USED FOR UNKNOWN INDICATION
     Dosage: UNK
     Route: 037

REACTIONS (6)
  - Wound infection staphylococcal [Recovered/Resolved]
  - Muscle spasticity [Recovered/Resolved]
  - Dystonia [Recovered/Resolved]
  - Withdrawal syndrome [Recovered/Resolved]
  - Meningitis [Unknown]
  - Erythema [Recovered/Resolved]

NARRATIVE: CASE EVENT DATE: 20111203
